FAERS Safety Report 14068228 (Version 5)
Quarter: 2018Q1

REPORT INFORMATION
  Report Type: Report from Study
  Country: CO (occurrence: CO)
  Receive Date: 20171010
  Receipt Date: 20180320
  Transmission Date: 20180508
  Serious: Yes (Hospitalization, Other)
  Sender: FDA-Public Use
  Company Number: CO-AMGEN-COLSL2017152381

PATIENT
  Age: 67 Year
  Sex: Male

DRUGS (3)
  1. VECTIBIX [Suspect]
     Active Substance: PANITUMUMAB
     Dosage: 290 MG, Q2WK
     Route: 042
     Dates: start: 2017, end: 201711
  2. VECTIBIX [Suspect]
     Active Substance: PANITUMUMAB
     Dosage: 290 MG, Q2WK
     Route: 042
     Dates: end: 20180212
  3. VECTIBIX [Suspect]
     Active Substance: PANITUMUMAB
     Indication: COLORECTAL CANCER METASTATIC
     Dosage: 290 MG, Q2WK
     Route: 042
     Dates: start: 20170725, end: 20170822

REACTIONS (5)
  - Gastroenteritis [Not Recovered/Not Resolved]
  - Renal neoplasm [Recovered/Resolved]
  - Weight decreased [Not Recovered/Not Resolved]
  - Renal disorder [Not Recovered/Not Resolved]
  - Thrombosis [Recovered/Resolved]

NARRATIVE: CASE EVENT DATE: 2017
